FAERS Safety Report 9212376 (Version 1)
Quarter: 2013Q2

REPORT INFORMATION
  Report Type: Spontaneous
  Country: US (occurrence: US)
  Receive Date: 20130404
  Receipt Date: 20130404
  Transmission Date: 20140414
  Serious: No
  Sender: FDA-Public Use
  Company Number: US-009507513-1304USA001111

PATIENT
  Age: 38 Year
  Sex: Female
  Weight: 114.29 kg

DRUGS (3)
  1. NUVARING [Suspect]
     Indication: MENOPAUSAL SYMPTOMS
     Dosage: INSERT 1 RING AND REPLACE EVERY 4 WEEKS THEN AFTER 12 WEEKS REMOVE RING FOR 7 DAYS
     Route: 067
     Dates: start: 20130206
  2. LEVOTHYROXINE SODIUM [Concomitant]
  3. LISINOPRIL [Concomitant]

REACTIONS (4)
  - Menopausal symptoms [Not Recovered/Not Resolved]
  - Incorrect drug administration duration [Unknown]
  - Inappropriate schedule of drug administration [Unknown]
  - Off label use [Unknown]
